FAERS Safety Report 24372202 (Version 2)
Quarter: 2024Q4

REPORT INFORMATION
  Report Type: Spontaneous
  Country: IT (occurrence: IT)
  Receive Date: 20240927
  Receipt Date: 20241112
  Transmission Date: 20250115
  Serious: Yes (Other)
  Sender: VERTEX
  Company Number: IT-VERTEX PHARMACEUTICALS-2024-015117

PATIENT
  Age: 2 Year
  Sex: Female

DRUGS (1)
  1. ELEXACAFTOR\IVACAFTOR\TEZACAFTOR [Suspect]
     Active Substance: ELEXACAFTOR\IVACAFTOR\TEZACAFTOR
     Indication: Cystic fibrosis
     Dosage: 60 MG IVACAFTOR/ 40 MG TEZACAFTOR/ 80 MG ELEXACAFTOR)
     Route: 048
     Dates: start: 20231227

REACTIONS (3)
  - COVID-19 [Recovered/Resolved]
  - Tonsillitis streptococcal [Recovered/Resolved]
  - Sinusitis [Recovered/Resolved]

NARRATIVE: CASE EVENT DATE: 20240325
